FAERS Safety Report 7775506-8 (Version None)
Quarter: 2011Q3

REPORT INFORMATION
  Report Type: 
  Country: None (occurrence: None)
  Receive Date: 20110923
  Receipt Date: 20110920
  Transmission Date: 20111222
  Serious: Yes (Hospitalization, Other)
  Sender: FDA-Public Use
  Company Number: FR-ROCHE-725577

PATIENT
  Sex: Male
  Weight: 35 kg

DRUGS (27)
  1. MUTESA [Concomitant]
     Dates: start: 20101112
  2. OMEPRAZOLE [Concomitant]
     Dates: start: 20100928, end: 20101005
  3. IFOSFAMIDE [Suspect]
     Dosage: 4TH CURE, LAST DOSE PRIOR TO SAE: 4 NOV 2010.
     Route: 042
     Dates: start: 20101101
  4. VINCRISTINE [Suspect]
     Dosage: RESTARTED. LAST DOSE PRIOR TO SAE : 17 SEPTEMBER 2010.
     Route: 042
     Dates: start: 20100917
  5. VINCRISTINE [Suspect]
     Dosage: DOSAGE FORM: 1.5 MG/M2, DATE OF LAST DOSE PRIOR TO SAE: 11 OCT 2010
     Route: 042
  6. BACTRIM [Concomitant]
     Dosage: REPORTED AS 800MGX3/W
     Dates: start: 20100827
  7. PLITICAN [Concomitant]
     Dates: start: 20100828, end: 20100902
  8. TRACUTIL [Concomitant]
     Dates: start: 20101110
  9. CLONAZEPAM [Concomitant]
     Dates: start: 20101110
  10. CALCIUM CARBONATE [Concomitant]
     Dosage: 500 MG X 2
     Dates: start: 20101029
  11. AVASTIN [Suspect]
     Indication: SARCOMA
     Dosage: FORM:7.5 MG/KG, TEMPORARILY INTERRUPTED
     Route: 041
     Dates: start: 20100828, end: 20101124
  12. DOXORUBICIN HCL [Suspect]
     Dosage: 4TH CURE, LAS DOSE PRIOR TO SAE: 4 NOV 2010.
     Route: 042
     Dates: start: 20101101
  13. VINCRISTINE [Suspect]
     Dosage: LAST DOSE PRIOR TO SAE: 3 NOV 2010.
     Route: 042
     Dates: start: 20101101
  14. SPASFON [Concomitant]
     Dosage: DOSE:1-2AMP/D
     Dates: start: 20100830
  15. NEURONTIN [Concomitant]
     Dosage: 20 MG X 3
     Dates: start: 20100903, end: 20101004
  16. CERNEVIT-12 [Concomitant]
     Dosage: TDD:1.5 AMP /D
     Dates: start: 20101110
  17. DOXORUBICIN HCL [Suspect]
     Indication: SARCOMA
     Dosage: FORM:60 MG/M2,
     Route: 042
     Dates: start: 20100828
  18. PIPERACILLIN AND TAZOBACTAM [Concomitant]
     Dates: end: 20101029
  19. ACETAMINOPHEN [Concomitant]
     Dosage: REPORTED AS 500MG*4/D
     Dates: start: 20100829
  20. AVASTIN [Suspect]
     Route: 041
     Dates: start: 20101215
  21. ZOFRAN [Concomitant]
     Dosage: REPORTED AS 8MG*2/D
     Dates: start: 20100828, end: 20100902
  22. DACTINOMYCIN [Suspect]
     Indication: SARCOMA
     Dosage: FORM:1.5 MG/M2,
     Route: 042
     Dates: start: 20100828
  23. DACTINOMYCIN [Suspect]
     Dosage: 4TH CURE, LAST DOSE PRIOR TO SAE: 03 NOV 2010.
     Route: 042
     Dates: start: 20101101
  24. IFOSFAMIDE [Suspect]
     Indication: SARCOMA
     Dosage: FORM:6 G/M2,
     Route: 042
     Dates: start: 20100828
  25. VINCRISTINE [Suspect]
     Indication: SARCOMA
     Dosage: FORM:1.5 MG/M2
     Route: 042
     Dates: start: 20100828, end: 20100903
  26. DOLOSAL [Concomitant]
     Dates: start: 20101110, end: 20101116
  27. FENTANYL [Concomitant]
     Dates: start: 20100902, end: 20100930

REACTIONS (7)
  - RASH VESICULAR [None]
  - MUCOSAL INFLAMMATION [None]
  - TOXIC EPIDERMAL NECROLYSIS [None]
  - NEURALGIA [None]
  - FEBRILE BONE MARROW APLASIA [None]
  - FIXED ERUPTION [None]
  - PERIPHERAL SENSORIMOTOR NEUROPATHY [None]
